FAERS Safety Report 24572059 (Version 1)
Quarter: 2024Q4

REPORT INFORMATION
  Report Type: Spontaneous
  Country: GB (occurrence: GB)
  Receive Date: 20241101
  Receipt Date: 20241101
  Transmission Date: 20250114
  Serious: Yes (Other)
  Sender: HIKMA PHARMACEUTICALS USA INC.
  Company Number: GB-MLMSERVICE-20241016-PI229911-00270-2

PATIENT
  Sex: Female

DRUGS (2)
  1. METHYLPREDNISOLONE [Suspect]
     Active Substance: METHYLPREDNISOLONE
     Indication: Sarcoidosis
     Dosage: UNKNOWN (HIGH STEROID DOSES)
     Route: 065
     Dates: start: 2006
  2. PREDNISOLONE [Suspect]
     Active Substance: PREDNISOLONE
     Indication: Sarcoidosis
     Dosage: UNKNOWN (HIGH STEROID DOSES)
     Route: 065
     Dates: start: 2006

REACTIONS (3)
  - Personality change [Unknown]
  - Nightmare [Unknown]
  - Psychotic disorder [Unknown]
